FAERS Safety Report 6299588-8 (Version None)
Quarter: 2009Q3

REPORT INFORMATION
  Report Type: 
  Country: None (occurrence: None)
  Receive Date: 20090806
  Receipt Date: 20090724
  Transmission Date: 20100115
  Serious: Yes (Hospitalization)
  Sender: FDA-Public Use
  Company Number: FR-GENENTECH-287799

PATIENT
  Sex: Male

DRUGS (10)
  1. BEVACIZUMAB [Suspect]
     Indication: GASTROINTESTINAL NEOPLASM
     Dosage: 340 MG, UNK
     Route: 042
     Dates: start: 20080519, end: 20090302
  2. BEVACIZUMAB [Suspect]
     Dosage: 400 MG, UNK
     Route: 042
  3. FLUOROURACIL [Suspect]
     Indication: GASTROINTESTINAL NEOPLASM
     Dosage: 610 MG, UNK
     Route: 042
     Dates: start: 20080519, end: 20090302
  4. ZANOSAR [Suspect]
     Indication: GASTROINTESTINAL NEOPLASM
     Dosage: 770 MG, UNK
     Route: 042
     Dates: start: 20080519, end: 20081003
  5. INSULINE [Concomitant]
     Indication: DRUG USE FOR UNKNOWN INDICATION
     Dosage: UNK
     Dates: start: 20040101
  6. TIEMONIUM METHYLSULFATE [Concomitant]
     Indication: DRUG USE FOR UNKNOWN INDICATION
     Dosage: UNK
     Dates: start: 20040101
  7. PANTOPRAZOLE SODIUM [Concomitant]
     Indication: DRUG USE FOR UNKNOWN INDICATION
     Dosage: UNK
     Dates: start: 20040101
  8. DAFALGAN [Concomitant]
     Indication: DRUG USE FOR UNKNOWN INDICATION
     Dosage: UNK
     Dates: start: 20040101
  9. EUROBIOL [Concomitant]
     Indication: DRUG USE FOR UNKNOWN INDICATION
     Dosage: UNK
     Dates: start: 20040101
  10. CETORNAN [Concomitant]
     Indication: DRUG USE FOR UNKNOWN INDICATION
     Dosage: UNK
     Dates: start: 20080806

REACTIONS (1)
  - MALNUTRITION [None]
